FAERS Safety Report 7544379-0 (Version None)
Quarter: 2011Q2

REPORT INFORMATION
  Report Type: 
  Country: None (occurrence: None)
  Receive Date: 20110613
  Receipt Date: 20080514
  Transmission Date: 20111010
  Serious: Yes (Hospitalization)
  Sender: FDA-Public Use
  Company Number: PHHY2008US03250

PATIENT
  Sex: Female
  Weight: 70.3 kg

DRUGS (7)
  1. PROGRAF [Concomitant]
     Indication: IMMUNOSUPPRESSION
     Dosage: 4 MG, BID
     Dates: start: 20080221, end: 20080314
  2. PROGRAF [Concomitant]
     Dosage: 3 MG, BID
     Dates: start: 20080403
  3. PROGRAF [Concomitant]
     Dosage: 3.5 MG, BID
     Dates: start: 20080328, end: 20080329
  4. PROGRAF [Concomitant]
     Dosage: 4 MG, BID
     Dates: start: 20080330, end: 20080331
  5. PROGRAF [Concomitant]
     Dosage: 3 MG, BID
     Dates: start: 20080315, end: 20080327
  6. MYFORTIC [Suspect]
     Indication: RENAL TRANSPLANT
     Dosage: 1440 MG, DAILY
     Route: 048
     Dates: start: 20080120
  7. PROGRAF [Concomitant]
     Dosage: 3.5 MG, BID
     Dates: start: 20080401, end: 20080402

REACTIONS (16)
  - BLOOD CREATININE INCREASED [None]
  - ANAEMIA [None]
  - HAEMOGLOBIN DECREASED [None]
  - BLOOD URIC ACID INCREASED [None]
  - POST PROCEDURAL SWELLING [None]
  - RENAL FAILURE ACUTE [None]
  - VOMITING [None]
  - PYREXIA [None]
  - FATIGUE [None]
  - OEDEMA [None]
  - DIARRHOEA [None]
  - HYDRONEPHROSIS [None]
  - HAEMORRHAGE URINARY TRACT [None]
  - URINE OUTPUT DECREASED [None]
  - NAUSEA [None]
  - ABDOMINAL PAIN [None]
